FAERS Safety Report 15784119 (Version 1)
Quarter: 2019Q1

REPORT INFORMATION
  Report Type: Report from Study
  Country: None (occurrence: US)
  Receive Date: 20190103
  Receipt Date: 20190103
  Transmission Date: 20190417
  Serious: Yes (Hospitalization)
  Sender: FDA-Public Use
  Company Number: US-ABBVIE-18K-163-2604438-00

PATIENT
  Age: 64 Year
  Sex: Female
  Weight: 59.02 kg

DRUGS (9)
  1. PRAVASTATIN. [Concomitant]
     Active Substance: PRAVASTATIN
     Indication: BLOOD CHOLESTEROL INCREASED
  2. NAPROSYN [Concomitant]
     Active Substance: NAPROXEN
     Indication: RHEUMATOID ARTHRITIS
  3. FISH OIL [Concomitant]
     Active Substance: FISH OIL
     Indication: CARDIOVASCULAR EVENT PROPHYLAXIS
  4. CALCIUM [Concomitant]
     Active Substance: CALCIUM
     Indication: MINERAL SUPPLEMENTATION
  5. FOLIC ACID. [Concomitant]
     Active Substance: FOLIC ACID
     Indication: RHEUMATOID ARTHRITIS
  6. METHOTREXATE. [Concomitant]
     Active Substance: METHOTREXATE
     Indication: RHEUMATOID ARTHRITIS
  7. HUMIRA [Suspect]
     Active Substance: ADALIMUMAB
     Indication: RHEUMATOID ARTHRITIS
     Route: 058
     Dates: start: 2009, end: 20181204
  8. ASPIRIN. [Concomitant]
     Active Substance: ASPIRIN
     Indication: ANTICOAGULANT THERAPY
  9. ATENOLOL. [Concomitant]
     Active Substance: ATENOLOL
     Indication: ARRHYTHMIA

REACTIONS (6)
  - Eye disorder [Not Recovered/Not Resolved]
  - Eye swelling [Recovering/Resolving]
  - Periorbital fat atrophy [Not Recovered/Not Resolved]
  - Vomiting [Recovering/Resolving]
  - Diplopia [Recovering/Resolving]
  - Nausea [Recovering/Resolving]

NARRATIVE: CASE EVENT DATE: 2017
